FAERS Safety Report 13893810 (Version 1)
Quarter: 2017Q3

REPORT INFORMATION
  Report Type: Not Available
  Country: None (occurrence: US)
  Receive Date: 20170822
  Receipt Date: 20170822
  Transmission Date: 20171127
  Serious: No
  Sender: FDA-Public Use
  Company Number: US-AKORN-62680

PATIENT

DRUGS (1)
  1. LEVALBUTEROL HYDROCHLORIDE. [Suspect]
     Active Substance: LEVALBUTEROL HYDROCHLORIDE

REACTIONS (1)
  - Dysgeusia [None]
